FAERS Safety Report 11049054 (Version 1)
Quarter: 2015Q2

REPORT INFORMATION
  Report Type: Report from Study
  Country: DE (occurrence: DE)
  Receive Date: 20150420
  Receipt Date: 20150420
  Transmission Date: 20150821
  Serious: Yes (Other)
  Sender: FDA-Public Use
  Company Number: DE-PFIZER INC-2014330702

PATIENT
  Age: 72 Year
  Sex: Female
  Weight: 104 kg

DRUGS (4)
  1. DAUNORUBICIN HCL [Suspect]
     Active Substance: DAUNORUBICIN HYDROCHLORIDE
     Dosage: 105 MG, UNK
     Route: 042
     Dates: start: 20141127, end: 20141129
  2. POSACONAZOLE [Concomitant]
     Active Substance: POSACONAZOLE
     Indication: ANTIFUNGAL PROPHYLAXIS
     Dosage: 5 ML, 2X/DAY (AT 12:00 AND 18:00)
     Route: 048
     Dates: start: 20141127, end: 20141127
  3. CYTARABINE. [Suspect]
     Active Substance: CYTARABINE
     Dosage: 175 MG, UNK
     Route: 042
     Dates: start: 20141125, end: 20141201
  4. TORISEL [Suspect]
     Active Substance: TEMSIROLIMUS
     Dosage: 12.5 MG CYCLIC

REACTIONS (1)
  - Aspergillus infection [Recovering/Resolving]

NARRATIVE: CASE EVENT DATE: 20141128
